FAERS Safety Report 7089919-3 (Version None)
Quarter: 2010Q4

REPORT INFORMATION
  Report Type: 
  Country: None (occurrence: None)
  Receive Date: 20101108
  Receipt Date: 20101027
  Transmission Date: 20110411
  Serious: Yes (Other)
  Sender: FDA-Public Use
  Company Number: NL-AMGEN-NLDSP2010001725

PATIENT

DRUGS (1)
  1. NPLATE [Suspect]

REACTIONS (1)
  - THROMBOSIS [None]
